FAERS Safety Report 5917217-7 (Version None)
Quarter: 2008Q4

REPORT INFORMATION
  Report Type: 
  Country: None (occurrence: None)
  Receive Date: 20081014
  Receipt Date: 20080930
  Transmission Date: 20090506
  Serious: Yes (Death)
  Sender: FDA-Public Use
  Company Number: IL-BAYER-200827943GPV

PATIENT
  Age: 70 Year
  Sex: Male

DRUGS (5)
  1. ACETYLSALICYLIC ACID SRT [Suspect]
     Indication: ANTIPLATELET THERAPY
  2. ACETYLSALICYLIC ACID SRT [Suspect]
  3. CLOPIDOGREL [Suspect]
     Indication: ANTIPLATELET THERAPY
  4. CLOPIDOGREL [Suspect]
  5. HEPARIN [Suspect]
     Indication: PORTAL VEIN THROMBOSIS

REACTIONS (3)
  - GASTROINTESTINAL HAEMORRHAGE [None]
  - OESOPHAGEAL VARICES HAEMORRHAGE [None]
  - PORTAL VEIN THROMBOSIS [None]
